FAERS Safety Report 6502474-9 (Version None)
Quarter: 2009Q4

REPORT INFORMATION
  Report Type: 
  Country: None (occurrence: None)
  Receive Date: 20091209
  Receipt Date: 20091127
  Transmission Date: 20100525
  Serious: Yes (Hospitalization)
  Sender: FDA-Public Use
  Company Number: WAES 0909USA02880

PATIENT
  Age: 62 Year
  Sex: Female

DRUGS (12)
  1. FOSAMAX [Suspect]
     Indication: OSTEOPOROSIS
     Dosage: 35 MG/WKY PO
     Route: 048
     Dates: start: 20071129, end: 20071213
  2. CELECOX [Concomitant]
  3. GASTROM [Concomitant]
  4. HYPEN [Concomitant]
  5. INDERAL [Concomitant]
  6. MUCOSTA [Concomitant]
  7. NORVASC [Concomitant]
  8. NU-LOTAN [Concomitant]
  9. PARIET [Concomitant]
  10. PREDNISOLONE [Concomitant]
  11. PREDONINE [Concomitant]
  12. NEUROTROPIN [Concomitant]

REACTIONS (4)
  - ANAEMIA [None]
  - DYSSTASIA [None]
  - GASTRIC ULCER HAEMORRHAGE [None]
  - RESPIRATORY DISTRESS [None]
